FAERS Safety Report 13746048 (Version 1)
Quarter: 2017Q3

REPORT INFORMATION
  Report Type: Spontaneous
  Country: US (occurrence: US)
  Receive Date: 20170712
  Receipt Date: 20170712
  Transmission Date: 20171127
  Serious: No
  Sender: FDA-Public Use
  Company Number: None

PATIENT
  Age: 46 Year
  Sex: Female

DRUGS (3)
  1. HCTZ [Concomitant]
     Active Substance: HYDROCHLOROTHIAZIDE
  2. MIRVASO [Suspect]
     Active Substance: BRIMONIDINE TARTRATE
     Indication: ROSACEA
     Dosage: ?          OTHER STRENGTH:GM;?
     Route: 061
     Dates: start: 20170626, end: 20170705
  3. BABY ASA [Concomitant]
     Active Substance: ASPIRIN

REACTIONS (3)
  - Erythema [None]
  - Drug ineffective [None]
  - Skin swelling [None]

NARRATIVE: CASE EVENT DATE: 20170701
